FAERS Safety Report 6609631-1 (Version None)
Quarter: 2010Q1

REPORT INFORMATION
  Report Type: 
  Country: None (occurrence: None)
  Receive Date: 20100302
  Receipt Date: 20100223
  Transmission Date: 20100710
  Serious: Yes (Hospitalization)
  Sender: FDA-Public Use
  Company Number: CZ-BRISTOL-MYERS SQUIBB COMPANY-14989115

PATIENT
  Age: 74 Year
  Sex: Female

DRUGS (6)
  1. MEGESTROL ACETATE [Suspect]
     Indication: ENDOMETRIAL CANCER
     Route: 048
     Dates: start: 20091216, end: 20100112
  2. AMLODIPINE BESYLATE [Concomitant]
     Dates: start: 19990701
  3. ASPIRIN [Concomitant]
     Dates: start: 19990701
  4. PAROXETINE HCL [Concomitant]
     Dates: start: 20080401
  5. SIMVASTATIN [Concomitant]
     Dates: start: 20050601
  6. TROSPIUM CHLORIDE [Concomitant]
     Dates: start: 20030401

REACTIONS (1)
  - PAIN IN EXTREMITY [None]
